FAERS Safety Report 7860017-1 (Version None)
Quarter: 2011Q4

REPORT INFORMATION
  Report Type: 
  Country: None (occurrence: None)
  Receive Date: 20111025
  Receipt Date: 20111018
  Transmission Date: 20120403
  Serious: Yes (Life-Threatening)
  Sender: FDA-Public Use
  Company Number: 2011SP048465

PATIENT
  Age: 63 Year
  Sex: Male
  Weight: 86 kg

DRUGS (14)
  1. VICTRELIS [Suspect]
     Indication: HEPATITIS C
     Dosage: 4 DF;TID
     Dates: start: 20110509
  2. COPEGUS [Concomitant]
  3. VIRAFERONPEG [Suspect]
     Indication: HEPATITIS C
     Dosage: 120 MCG;QW;SC, 100 MCG;QW;SC
     Route: 058
     Dates: start: 20110915
  4. VIRAFERONPEG [Suspect]
     Indication: HEPATITIS C
     Dosage: 120 MCG;QW;SC, 100 MCG;QW;SC
     Route: 058
     Dates: start: 20110330
  5. MICONAZOLE [Concomitant]
  6. PEGASYS [Concomitant]
  7. PEGASYS [Concomitant]
  8. MICONAZOLE [Concomitant]
  9. TOPLEXIL [Concomitant]
  10. COPEGUS [Concomitant]
  11. NEORECORMON [Concomitant]
  12. COPEGUS [Suspect]
     Indication: HEPATITIS C
     Dosage: 400 MG;TID, 200 MG;BID
     Dates: start: 20110330
  13. COPEGUS [Suspect]
     Indication: HEPATITIS C
     Dosage: 400 MG;TID, 200 MG;BID
     Dates: start: 20110811
  14. LANSOPRAZOLE [Concomitant]

REACTIONS (6)
  - DIFFUSE LARGE B-CELL LYMPHOMA [None]
  - LYMPHOCELE [None]
  - SUBCUTANEOUS ABSCESS [None]
  - SUPERINFECTION [None]
  - THROMBOCYTOPENIA [None]
  - ANAEMIA [None]
